FAERS Safety Report 12521031 (Version 2)
Quarter: 2016Q3

REPORT INFORMATION
  Report Type: Spontaneous
  Country: US (occurrence: US)
  Receive Date: 20160701
  Receipt Date: 20160825
  Transmission Date: 20161109
  Serious: No
  Sender: FDA-Public Use
  Company Number: US-009507513-1606USA010971

PATIENT
  Age: 60 Year
  Sex: Male

DRUGS (3)
  1. LUMIGAN [Concomitant]
     Active Substance: BIMATOPROST
     Dosage: UNK
  2. TRUSOPT [Suspect]
     Active Substance: DORZOLAMIDE HYDROCHLORIDE
     Indication: GLAUCOMA
     Dosage: UNK
     Route: 047
  3. DORZOLAMIDE HYDROCHLORIDE. [Suspect]
     Active Substance: DORZOLAMIDE HYDROCHLORIDE
     Indication: GLAUCOMA
     Dosage: UNK
     Route: 047

REACTIONS (2)
  - Blood pressure increased [Unknown]
  - Adverse event [Unknown]
